FAERS Safety Report 6814116-3 (Version None)
Quarter: 2010Q3

REPORT INFORMATION
  Report Type: 
  Country: None (occurrence: None)
  Receive Date: 20100702
  Receipt Date: 20091211
  Transmission Date: 20110219
  Serious: No
  Sender: FDA-Public Use
  Company Number: A0834789A

PATIENT
  Age: 78 Year
  Sex: Male

DRUGS (6)
  1. ADVAIR DISKUS 100/50 [Suspect]
     Indication: CHRONIC OBSTRUCTIVE PULMONARY DISEASE
     Dosage: 1PUFF TWICE PER DAY
     Route: 055
     Dates: start: 20091101
  2. AZOPT [Concomitant]
  3. LEVOBUNOLOL HCL [Concomitant]
  4. SIMVASTATIN [Concomitant]
  5. PROMETHAZINE [Concomitant]
  6. FORTICAL [Concomitant]

REACTIONS (3)
  - ERYTHEMA [None]
  - OROPHARYNGEAL PAIN [None]
  - PRURITUS [None]
